FAERS Safety Report 24041072 (Version 1)
Quarter: 2024Q3

REPORT INFORMATION
  Report Type: Spontaneous
  Country: US (occurrence: None)
  Receive Date: 20240701
  Receipt Date: 20240701
  Transmission Date: 20241017
  Serious: Yes (Congenital Anomaly, Other)
  Sender: Public
  Company Number: None

PATIENT
  Age: 77 Year
  Sex: Female
  Weight: 77.4 kg

DRUGS (1)
  1. PROLIA [Suspect]
     Active Substance: DENOSUMAB
     Indication: Osteoarthritis
     Dates: end: 20231228

REACTIONS (10)
  - Alopecia [None]
  - Dehydration [None]
  - Vomiting [None]
  - Diarrhoea [None]
  - Tooth fracture [None]
  - Depression [None]
  - Upper respiratory tract infection [None]
  - Myalgia [None]
  - Fatigue [None]
  - Disturbance in social behaviour [None]

NARRATIVE: CASE EVENT DATE: 20230618
